FAERS Safety Report 18164241 (Version 2)
Quarter: 2020Q4

REPORT INFORMATION
  Report Type: Report from Study
  Country: JP (occurrence: JP)
  Receive Date: 20200818
  Receipt Date: 20201006
  Transmission Date: 20210113
  Serious: Yes (Other)
  Sender: FDA-Public Use
  Company Number: JP-ALLERGAN-2030513US

PATIENT
  Sex: Female

DRUGS (6)
  1. BOTULINUM TOXIN TYPE A - GENERAL (9060X) [Suspect]
     Active Substance: BOTULINUM TOXIN TYPE A
     Dosage: 2.5 UNITS, SINGLE
     Route: 030
     Dates: start: 20191120, end: 20191120
  2. BOTULINUM TOXIN TYPE A - GENERAL (9060X) [Suspect]
     Active Substance: BOTULINUM TOXIN TYPE A
     Dosage: 2.5 UNITS, SINGLE
     Route: 030
     Dates: start: 20190626, end: 20190626
  3. BOTULINUM TOXIN TYPE A - GENERAL (9060X) [Suspect]
     Active Substance: BOTULINUM TOXIN TYPE A
     Dosage: 2.5 UNITS, SINGLE
     Route: 030
     Dates: start: 20190327, end: 20190327
  4. BOTULINUM TOXIN TYPE A - GENERAL (9060X) [Suspect]
     Active Substance: BOTULINUM TOXIN TYPE A
     Dosage: 2.5 UNITS, SINGLE
     Route: 030
     Dates: start: 20190904, end: 20190904
  5. BOTULINUM TOXIN TYPE A - GENERAL (9060X) [Suspect]
     Active Substance: BOTULINUM TOXIN TYPE A
     Dosage: 1.25 UNITS, SINGLE
     Route: 030
     Dates: start: 20190904, end: 20190904
  6. BOTULINUM TOXIN TYPE A - GENERAL (9060X) [Suspect]
     Active Substance: BOTULINUM TOXIN TYPE A
     Indication: SPASMODIC DYSPHONIA
     Dosage: 1.25 UNITS, SINGLE
     Route: 030
     Dates: start: 20191120, end: 20191120

REACTIONS (5)
  - Dysphonia [Recovered/Resolved]
  - Off label use [Unknown]
  - Inappropriate schedule of product administration [Unknown]
  - Aspiration [Recovered/Resolved]
  - Aspiration [Recovered/Resolved]

NARRATIVE: CASE EVENT DATE: 20190328
